FAERS Safety Report 9614406 (Version 1)
Quarter: 2013Q4

REPORT INFORMATION
  Report Type: Spontaneous
  Country: US (occurrence: None)
  Receive Date: 20131007
  Receipt Date: 20131007
  Transmission Date: 20140711
  Serious: Yes (Hospitalization)
  Sender: FDA-Public Use
  Company Number: None

PATIENT
  Age: 70 Year
  Sex: Male
  Weight: 116.1 kg

DRUGS (3)
  1. ZOLPIDEM [Suspect]
     Indication: PAIN
     Route: 048
     Dates: start: 20130828, end: 20130830
  2. ZOLPIDEM [Suspect]
     Indication: FIBROMYALGIA
     Route: 048
     Dates: start: 20130828, end: 20130830
  3. PREGABALIN [Suspect]
     Route: 048
     Dates: start: 20130828, end: 20130830

REACTIONS (3)
  - Fall [None]
  - Confusional state [None]
  - Somnolence [None]
